FAERS Safety Report 16945627 (Version 1)
Quarter: 2019Q4

REPORT INFORMATION
  Report Type: Spontaneous
  Country: US (occurrence: US)
  Receive Date: 20191021
  Receipt Date: 20191021
  Transmission Date: 20200122
  Serious: Yes (Disabling)
  Sender: FDA-Public Use
  Company Number: None

PATIENT
  Age: 59 Year
  Sex: Female
  Weight: 96.75 kg

DRUGS (1)
  1. PROPOFOL - AN ANESTHETIC GIVEN DURING A PROCEDURE [Suspect]
     Active Substance: PROPOFOL
     Indication: ANAESTHESIA

REACTIONS (17)
  - Dysphagia [None]
  - Injection site bruising [None]
  - Injection site pain [None]
  - Amnesia [None]
  - Muscular weakness [None]
  - Chest pain [None]
  - Vertigo [None]
  - Vomiting [None]
  - Palpitations [None]
  - Chills [None]
  - Extrasystoles [None]
  - Headache [None]
  - Bedridden [None]
  - Hypophagia [None]
  - Nausea [None]
  - Visual impairment [None]
  - Injection site induration [None]

NARRATIVE: CASE EVENT DATE: 20181031
